FAERS Safety Report 4281975-0 (Version None)
Quarter: 2004Q1

REPORT INFORMATION
  Report Type: 
  Country: None (occurrence: None)
  Receive Date: 20040128
  Receipt Date: 20040113
  Transmission Date: 20041129
  Serious: Yes (Hospitalization)
  Sender: FDA-Public Use
  Company Number: US012103

PATIENT
  Age: 56 Year
  Sex: Male

DRUGS (2)
  1. ACTIQ [Suspect]
     Indication: HEADACHE
     Dosage: 200 UG Q4HR BUCCAL
     Route: 002
  2. ACTIQ [Suspect]
     Indication: NEUROPATHY
     Dosage: 200 UG Q4HR BUCCAL
     Route: 002

REACTIONS (3)
  - CONDITION AGGRAVATED [None]
  - FOREIGN BODY TRAUMA [None]
  - PNEUMONIA [None]
